FAERS Safety Report 8177892-6 (Version None)
Quarter: 2012Q1

REPORT INFORMATION
  Report Type: 
  Country: None (occurrence: None)
  Receive Date: 20120301
  Receipt Date: 20110301
  Transmission Date: 20120608
  Serious: No
  Sender: FDA-Public Use
  Company Number: US-ASTRAZENECA-2011SE11167

PATIENT
  Age: 84 Year
  Sex: Male
  Weight: 78 kg

DRUGS (3)
  1. CASODEX [Suspect]
     Indication: NEOPLASM MALIGNANT
     Route: 048
  2. ASPIRIN [Concomitant]
     Indication: PROPHYLAXIS
  3. MULTI-VITAMIN [Concomitant]
     Indication: NUTRITIONAL SUPPORT

REACTIONS (1)
  - BLOOD PRESSURE INCREASED [None]
